FAERS Safety Report 8389959 (Version 2)
Quarter: 2013Q2

REPORT INFORMATION
  Report Type: Spontaneous
  Country: US (occurrence: None)
  Receive Date: 20111221
  Receipt Date: 20121227
  Transmission Date: 20140414
  Serious: Yes (Hospitalization)
  Sender: FDA-Public Use
  Company Number: PHHY2011US63824

PATIENT
  Age: 38 Year
  Sex: Female
  Weight: 81.6 kg

DRUGS (16)
  1. EXJADE [Suspect]
     Indication: SICKLE CELL ANAEMIA
     Dosage: 1000 MG DAILY, ORAL
     Route: 048
     Dates: start: 20110427, end: 20110922
  2. EXJADE [Suspect]
     Indication: HAEMOCHROMATOSIS
     Dosage: 1000 MG DAILY, ORAL
     Route: 048
     Dates: start: 20110427, end: 20110922
  3. EXJADE [Suspect]
     Indication: TRANSFUSION
     Dosage: 1000 MG DAILY, ORAL
     Route: 048
     Dates: start: 20110427, end: 20110922
  4. HUMAN IMMUNOGLOBULIN G [Concomitant]
  5. LASIX (FUROSEMIDE) [Concomitant]
  6. BUTALBITAL, ACETAMINOPHEN + CAFFEINE (BUTALBITAL, CAFFEINE, PARACETAMOL) [Concomitant]
  7. FOLIC ACID (FOLIC ACID) [Concomitant]
  8. HYDROMORPHONE (HYDROMORPHONE) [Concomitant]
  9. DILAUDID (HYDROMORPHONE HYDROCHLORIDE) [Concomitant]
  10. HYDROXYZINE PAMOATE (HYDROXYZINE EMBONATE) [Concomitant]
  11. EPIPEN (EPINEPHRINE) [Concomitant]
  12. AMOXICILLIN (AMOXICILLIN) [Concomitant]
  13. MORPHINE (MORPHINE) [Concomitant]
  14. PROVENTIL HFA (SALBUTAMOL) [Concomitant]
  15. CHLORDIAZEPOXIDE W/AMITRIPTYLINE (AMITRIPTYLINE, CHLORDIAZEPOXIDE) [Concomitant]
  16. VISTARIL (HYDROXYZINE EMBONATE) [Concomitant]

REACTIONS (3)
  - SICKLE CELL ANAEMIA [None]
  - ABDOMINAL PAIN UPPER [None]
  - NAUSEA [None]
